FAERS Safety Report 9031206 (Version 1)
Quarter: 2013Q1

REPORT INFORMATION
  Report Type: Spontaneous
  Country: US (occurrence: US)
  Receive Date: 20130123
  Receipt Date: 20130123
  Transmission Date: 20140127
  Serious: Yes (Other)
  Sender: FDA-Public Use
  Company Number: US-ROXANE LABORATORIES, INC.-2013-RO-00111RO

PATIENT
  Age: 74 Year
  Sex: Female

DRUGS (1)
  1. EXEMESTANE [Suspect]
     Indication: BREAST CANCER
     Dosage: 25 MG
     Route: 048
     Dates: start: 20121102

REACTIONS (5)
  - Visual impairment [Recovered/Resolved]
  - Headache [Recovered/Resolved]
  - Rectal haemorrhage [Recovered/Resolved]
  - Rectal discharge [Recovered/Resolved]
  - Alopecia [Not Recovered/Not Resolved]
